FAERS Safety Report 7481758-4 (Version None)
Quarter: 2011Q2

REPORT INFORMATION
  Report Type: 
  Country: None (occurrence: None)
  Receive Date: 20110516
  Receipt Date: 20110506
  Transmission Date: 20111010
  Serious: Yes (Hospitalization)
  Sender: FDA-Public Use
  Company Number: B0717632A

PATIENT
  Age: 17 Year
  Sex: Female

DRUGS (2)
  1. AMOXICILLIN AND CLAVULANATE POTASSIUM [Suspect]
     Dosage: 6G THREE TIMES PER DAY
     Route: 042
     Dates: start: 20110327, end: 20110405
  2. AMIKACIN [Concomitant]
     Route: 065
     Dates: start: 20110327

REACTIONS (5)
  - CYSTITIS HAEMORRHAGIC [None]
  - DYSURIA [None]
  - HAEMATURIA [None]
  - POLLAKIURIA [None]
  - PELVIC PAIN [None]
